FAERS Safety Report 8329126-7 (Version None)
Quarter: 2012Q2

REPORT INFORMATION
  Report Type: 
  Country: None (occurrence: None)
  Receive Date: 20120502
  Receipt Date: 20101015
  Transmission Date: 20120825
  Serious: No
  Sender: FDA-Public Use
  Company Number: US-TEVA-2010005465

PATIENT
  Sex: Female
  Weight: 88.53 kg

DRUGS (11)
  1. REBIF [Concomitant]
     Dates: start: 20090101
  2. AMBIEN [Concomitant]
  3. LEVOTHYROXINE SODIUM [Concomitant]
  4. TRAMADOL HCL [Concomitant]
     Dates: start: 20090101
  5. NUVIGIL [Suspect]
     Indication: FATIGUE
     Dosage: 150 MILLIGRAM;
     Route: 048
     Dates: start: 20101014
  6. INSULIN [Concomitant]
     Dates: start: 20080101
  7. DEPAKOTE ER [Concomitant]
     Dates: start: 20000101
  8. CLONAZEPAM [Concomitant]
  9. VENTOLIN [Concomitant]
  10. ADVAIR DISKUS 100/50 [Concomitant]
  11. VITAMIN D [Concomitant]

REACTIONS (1)
  - PSYCHOMOTOR HYPERACTIVITY [None]
